FAERS Safety Report 13161808 (Version 2)
Quarter: 2017Q1

REPORT INFORMATION
  Report Type: Spontaneous
  Country: ES (occurrence: ES)
  Receive Date: 20170130
  Receipt Date: 20170320
  Transmission Date: 20170428
  Serious: Yes (Hospitalization, Other)
  Sender: FDA-Public Use
  Company Number: ES-SHIRE-ES201701725

PATIENT
  Age: 22 Year
  Sex: Male

DRUGS (2)
  1. 476 (MESALAZINE/MESALAMINE) [Suspect]
     Active Substance: MESALAMINE
     Indication: CROHN^S DISEASE
     Dosage: 1 G, 2X/DAY:BID (EVERY 12H)
     Route: 048
  2. BUDESONIDE. [Concomitant]
     Active Substance: BUDESONIDE
     Indication: CROHN^S DISEASE
     Dosage: 3 MG, 1X/DAY:QD
     Route: 065

REACTIONS (4)
  - Chest pain [Recovered/Resolved]
  - Product use issue [Recovered/Resolved]
  - Myocarditis [Recovered/Resolved]
  - Inappropriate schedule of drug administration [Recovered/Resolved]
